FAERS Safety Report 9025516 (Version 6)
Quarter: 2014Q4

REPORT INFORMATION
  Report Type: Spontaneous
  Country: US (occurrence: US)
  Receive Date: 20130122
  Receipt Date: 20141007
  Transmission Date: 20150529
  Serious: Yes (Hospitalization, Other)
  Sender: FDA-Public Use
  Company Number: US-009507513-1301USA010122

PATIENT
  Sex: Female

DRUGS (6)
  1. ALENDRONATE SODIUM. [Suspect]
     Active Substance: ALENDRONATE SODIUM
     Indication: OSTEOPOROSIS
     Dosage: 70 MG, QW
     Dates: start: 200802, end: 201012
  2. CALCIUM (UNSPECIFIED) (+) VITAMIN D (UNSPECIFIED) [Concomitant]
     Active Substance: CALCIUM CARBONATE\VITAMIN D
     Dosage: 500 DF, QD
     Dates: start: 1990
  3. VITAMIN D [Concomitant]
     Active Substance: CHOLECALCIFEROL
     Dosage: 2000 IU, QD
     Dates: start: 1990
  4. FOSAMAX [Suspect]
     Active Substance: ALENDRONATE SODIUM
     Indication: OSTEOPOROSIS
     Dosage: 10 MG, QD
     Route: 048
     Dates: start: 20000720, end: 200110
  5. FOSAMAX [Suspect]
     Active Substance: ALENDRONATE SODIUM
     Dosage: 70 MG, QW
     Route: 048
     Dates: start: 200110, end: 200801
  6. VITAMINS (UNSPECIFIED) [Concomitant]
     Active Substance: VITAMINS
     Dosage: UNK
     Dates: start: 1990

REACTIONS (40)
  - Open reduction of fracture [Unknown]
  - Patella fracture [Unknown]
  - Bursitis [Unknown]
  - Depression [Unknown]
  - Compression fracture [Unknown]
  - Arthritis [Unknown]
  - Fall [Unknown]
  - Impaired healing [Unknown]
  - Bursa removal [Unknown]
  - Pituitary-dependent Cushing^s syndrome [Unknown]
  - Bone graft [Unknown]
  - Intramedullary rod insertion [Unknown]
  - Chronic obstructive pulmonary disease [Unknown]
  - Femur fracture [Unknown]
  - Anxiety [Unknown]
  - Osteopenia [Unknown]
  - Impaired healing [Unknown]
  - Nausea [Unknown]
  - Cervical vertebral fracture [Unknown]
  - Osteoarthritis [Unknown]
  - Periostitis [Unknown]
  - Radius fracture [Unknown]
  - Exostosis [Unknown]
  - Arthritis [Not Recovered/Not Resolved]
  - Bone formation increased [Unknown]
  - Osteoarthritis [Unknown]
  - Hypercholesterolaemia [Unknown]
  - Foot fracture [Unknown]
  - Radius fracture [Unknown]
  - Ligament sprain [Unknown]
  - Bone lesion excision [Unknown]
  - Hypertension [Unknown]
  - Closed fracture manipulation [Unknown]
  - Rib fracture [Unknown]
  - Rotator cuff syndrome [Unknown]
  - Tonsillectomy [Unknown]
  - Arthritis [Unknown]
  - Urinary incontinence [Unknown]
  - Pain in extremity [Unknown]
  - Arthralgia [Unknown]

NARRATIVE: CASE EVENT DATE: 2000
